FAERS Safety Report 21177969 (Version 1)
Quarter: 2022Q3

REPORT INFORMATION
  Report Type: Spontaneous
  Country: US (occurrence: None)
  Receive Date: 20220804
  Receipt Date: 20220804
  Transmission Date: 20221027
  Serious: Yes (Death)
  Sender: FDA-Public Use
  Company Number: None

PATIENT
  Age: 26 Year
  Sex: Female

DRUGS (2)
  1. MIFEPRISTONE [Suspect]
     Active Substance: MIFEPRISTONE
     Indication: Abortion induced
     Dosage: FREQUENCY : ONCE;?
     Route: 048
     Dates: start: 20220506
  2. MISOPROSTOL [Suspect]
     Active Substance: MISOPROSTOL
     Indication: Abortion induced
     Dosage: FREQUENCY : ONCE;?
     Route: 067

REACTIONS (3)
  - Gun shot wound [None]
  - Head injury [None]
  - Completed suicide [None]

NARRATIVE: CASE EVENT DATE: 20220518
